FAERS Safety Report 14642441 (Version 1)
Quarter: 2018Q1

REPORT INFORMATION
  Report Type: Spontaneous
  Country: GB (occurrence: GB)
  Receive Date: 20180315
  Receipt Date: 20180315
  Transmission Date: 20180509
  Serious: Yes (Death, Life-Threatening, Hospitalization, Disabling, Other)
  Sender: FDA-Public Use
  Company Number: GB-TEVA-2018-GB-867965

PATIENT
  Age: 74 Year
  Sex: Female
  Weight: 49 kg

DRUGS (9)
  1. WARFARIN [Suspect]
     Active Substance: WARFARIN
     Indication: ANTICOAGULANT THERAPY
     Dosage: UNKNOWN.
     Route: 048
  2. AMITRIPTYLINE [Concomitant]
     Active Substance: AMITRIPTYLINE
     Route: 065
  3. DIGOXIN. [Concomitant]
     Active Substance: DIGOXIN
     Route: 065
  4. ALLOPURINOL. [Concomitant]
     Active Substance: ALLOPURINOL
     Route: 065
  5. SALBUTAMOL [Concomitant]
     Active Substance: ALBUTEROL
     Route: 065
  6. BISOPROLOL FUMARATE. [Concomitant]
     Active Substance: BISOPROLOL FUMARATE
     Route: 065
  7. PERINDOPRIL [Concomitant]
     Active Substance: PERINDOPRIL
     Route: 065
  8. PARACETAMOL [Concomitant]
     Active Substance: ACETAMINOPHEN
     Route: 065
  9. FUROSEMIDE. [Concomitant]
     Active Substance: FUROSEMIDE
     Route: 065

REACTIONS (7)
  - Retroperitoneal haematoma [Fatal]
  - Delirium [Fatal]
  - International normalised ratio increased [Fatal]
  - Perirenal haematoma [Fatal]
  - Abdominal pain [Fatal]
  - Pneumonia [Fatal]
  - Upper gastrointestinal haemorrhage [Fatal]
